FAERS Safety Report 19873381 (Version 2)
Quarter: 2021Q4

REPORT INFORMATION
  Report Type: Spontaneous
  Country: US (occurrence: US)
  Receive Date: 20210923
  Receipt Date: 20211004
  Transmission Date: 20220303
  Serious: Yes (Other)
  Sender: FDA-Public Use
  Company Number: US-TEVA-2021-US-1955543

PATIENT
  Age: 43 Year
  Sex: Female
  Weight: 49 kg

DRUGS (2)
  1. DISULFIRAM [Suspect]
     Active Substance: DISULFIRAM
     Indication: Lyme disease
     Dosage: 2.5 MG/KG DAILY; 2.5MG/KG/DAY FOR 4 MONTHS
     Route: 065
  2. DISULFIRAM [Suspect]
     Active Substance: DISULFIRAM
     Indication: Babesiosis
     Dosage: 0.4MG/KG/DAY
     Route: 065

REACTIONS (3)
  - Psychiatric symptom [Unknown]
  - Fatigue [Unknown]
  - Off label use [Unknown]
